FAERS Safety Report 24876926 (Version 2)
Quarter: 2025Q1

REPORT INFORMATION
  Report Type: Spontaneous
  Country: CN (occurrence: CN)
  Receive Date: 20250123
  Receipt Date: 20250131
  Transmission Date: 20250408
  Serious: Yes (Hospitalization, Other)
  Sender: SANOFI AVENTIS
  Company Number: CN-MLMSERVICE-20250114-PI348449-00082-1

PATIENT
  Age: 59 Year
  Sex: Female

DRUGS (12)
  1. DOCETAXEL [Suspect]
     Active Substance: DOCETAXEL
     Indication: Invasive ductal breast carcinoma
     Dates: start: 202310
  2. DOCETAXEL [Suspect]
     Active Substance: DOCETAXEL
     Indication: Intraductal proliferative breast lesion
  3. DOCETAXEL [Suspect]
     Active Substance: DOCETAXEL
     Indication: HER2 positive breast cancer
  4. CARBOPLATIN [Suspect]
     Active Substance: CARBOPLATIN
     Indication: Invasive ductal breast carcinoma
     Dates: start: 202310
  5. CARBOPLATIN [Suspect]
     Active Substance: CARBOPLATIN
     Indication: Intraductal proliferative breast lesion
  6. CARBOPLATIN [Suspect]
     Active Substance: CARBOPLATIN
     Indication: HER2 positive breast cancer
  7. TRASTUZUMAB [Suspect]
     Active Substance: TRASTUZUMAB
     Indication: Invasive ductal breast carcinoma
     Dates: start: 202310, end: 2024
  8. TRASTUZUMAB [Suspect]
     Active Substance: TRASTUZUMAB
     Indication: Intraductal proliferative breast lesion
  9. TRASTUZUMAB [Suspect]
     Active Substance: TRASTUZUMAB
     Indication: HER2 positive breast cancer
  10. PERTUZUMAB [Suspect]
     Active Substance: PERTUZUMAB
     Indication: Invasive ductal breast carcinoma
     Dates: start: 202310, end: 2024
  11. PERTUZUMAB [Suspect]
     Active Substance: PERTUZUMAB
     Indication: Intraductal proliferative breast lesion
  12. PERTUZUMAB [Suspect]
     Active Substance: PERTUZUMAB
     Indication: HER2 positive breast cancer

REACTIONS (15)
  - Systemic scleroderma [Recovering/Resolving]
  - Non-pitting oedema [Recovering/Resolving]
  - Pruritus [Recovering/Resolving]
  - Skin hyperpigmentation [Recovering/Resolving]
  - Skin fibrosis [Recovering/Resolving]
  - Interstitial lung disease [Recovering/Resolving]
  - Hypokinesia [Recovering/Resolving]
  - Skin swelling [Recovering/Resolving]
  - Skin tightness [Recovering/Resolving]
  - Skin ulcer [Recovering/Resolving]
  - Musculoskeletal stiffness [Recovering/Resolving]
  - Pain in extremity [Recovering/Resolving]
  - Peripheral swelling [Recovering/Resolving]
  - Raynaud^s phenomenon [Recovering/Resolving]
  - Pulmonary hypertension [Not Recovered/Not Resolved]

NARRATIVE: CASE EVENT DATE: 20231101
